FAERS Safety Report 18882585 (Version 1)
Quarter: 2021Q1

REPORT INFORMATION
  Report Type: Spontaneous
  Country: RU (occurrence: RU)
  Receive Date: 20210211
  Receipt Date: 20210211
  Transmission Date: 20210420
  Serious: Yes (Hospitalization, Other)
  Sender: FDA-Public Use
  Company Number: NVSC2021RU027324

PATIENT
  Age: 12 Year
  Sex: Female
  Weight: 40 kg

DRUGS (1)
  1. AMOKSIKLAV [Suspect]
     Active Substance: AMOXICILLIN\CLAVULANATE POTASSIUM
     Indication: PHARYNGITIS STREPTOCOCCAL
     Dosage: 1000 MG, BID (875+125)
     Route: 048
     Dates: start: 20210122, end: 20210127

REACTIONS (3)
  - Epstein-Barr virus infection [Unknown]
  - Drug eruption [Recovering/Resolving]
  - Body temperature increased [Unknown]

NARRATIVE: CASE EVENT DATE: 20210129
